FAERS Safety Report 10667974 (Version 1)
Quarter: 2014Q4

REPORT INFORMATION
  Report Type: Spontaneous
  Country: GB (occurrence: None)
  Receive Date: 20141218
  Receipt Date: 20141218
  Transmission Date: 20150529
  Serious: Yes (Other)
  Sender: FDA-Public Use
  Company Number: 2014JUB00216

PATIENT
  Age: 3 Year
  Sex: Female

DRUGS (2)
  1. TOPIRAMATE (TOPIRAMATE) [Concomitant]
     Active Substance: TOPIRAMATE
  2. LAMOTRIGINE (LAMOTRIGINE) UNKNOWN [Suspect]
     Active Substance: LAMOTRIGINE
     Indication: TONIC CONVULSION

REACTIONS (5)
  - Cerebral disorder [None]
  - Atonic seizures [None]
  - Dysarthria [None]
  - Dysphemia [None]
  - Drooling [None]
